FAERS Safety Report 12465983 (Version 2)
Quarter: 2016Q2

REPORT INFORMATION
  Report Type: Spontaneous
  Country: US (occurrence: US)
  Receive Date: 20160614
  Receipt Date: 20160627
  Transmission Date: 20160815
  Serious: No
  Sender: FDA-Public Use
  Company Number: US-GILEAD-2016-0218472

PATIENT
  Age: 57 Year
  Sex: Female
  Weight: 67.12 kg

DRUGS (3)
  1. HARVONI [Suspect]
     Active Substance: LEDIPASVIR\SOFOSBUVIR
     Indication: HEPATITIS C
     Dosage: 1 DF, UNK
     Route: 048
     Dates: start: 20160215, end: 20160411
  2. MARIJUANA [Concomitant]
     Active Substance: CANNABIS SATIVA SUBSP. INDICA TOP
  3. ALPRAZOLAM. [Concomitant]
     Active Substance: ALPRAZOLAM
     Dosage: 0.5 UNKNOWN, UNK
     Route: 048

REACTIONS (8)
  - Blood glucose increased [Unknown]
  - Headache [Recovered/Resolved]
  - Hypothyroidism [Unknown]
  - Fatigue [Recovered/Resolved]
  - Skin disorder [Unknown]
  - Capillary disorder [Unknown]
  - Arrhythmia [Unknown]
  - Blood thyroid stimulating hormone increased [Unknown]
